FAERS Safety Report 5454032-5 (Version None)
Quarter: 2007Q3

REPORT INFORMATION
  Report Type: 
  Country: None (occurrence: None)
  Receive Date: 20070917
  Receipt Date: 20061109
  Transmission Date: 20080115
  Serious: No
  Sender: FDA-Public Use
  Company Number: US-ASTRAZENECA-2006UW04763

PATIENT
  Age: 66 Year
  Sex: Female
  Weight: 59 kg

DRUGS (12)
  1. SEROQUEL [Suspect]
     Indication: DEMENTIA ALZHEIMER'S TYPE
     Route: 048
     Dates: start: 20060309
  2. SEROQUEL [Suspect]
     Indication: AGITATION
     Route: 048
     Dates: start: 20060309
  3. SEROQUEL [Suspect]
     Route: 048
  4. SEROQUEL [Suspect]
     Route: 048
  5. LEXAPRO [Concomitant]
  6. METFORMIN HCL [Concomitant]
  7. NAMENDA [Concomitant]
  8. RAZADYNE [Concomitant]
  9. CRESTOR [Concomitant]
  10. EXELON [Concomitant]
  11. ASPIRIN [Concomitant]
  12. XANAX [Concomitant]

REACTIONS (10)
  - AGITATION [None]
  - DYSKINESIA [None]
  - DYSSTASIA [None]
  - FALL [None]
  - INCOHERENT [None]
  - LOSS OF CONSCIOUSNESS [None]
  - PSYCHOTIC DISORDER [None]
  - SLEEP DISORDER [None]
  - TREMOR [None]
  - VOMITING [None]
